FAERS Safety Report 7970734-0 (Version None)
Quarter: 2011Q4

REPORT INFORMATION
  Report Type: 
  Country: None (occurrence: None)
  Receive Date: 20111212
  Receipt Date: 20111129
  Transmission Date: 20120403
  Serious: Yes (Hospitalization, Other)
  Sender: FDA-Public Use
  Company Number: PHHY2011US67764

PATIENT
  Sex: Female
  Weight: 67 kg

DRUGS (8)
  1. EXJADE [Suspect]
     Indication: IRON OVERLOAD
  2. XANAX [Concomitant]
     Indication: ANXIETY
     Dosage: 0.25 MG, UNK
     Route: 048
     Dates: start: 20110826
  3. CALCIUM WITH VITAMIN D [Concomitant]
     Route: 048
  4. VITAMIN B6 [Concomitant]
     Route: 048
  5. ATENOLOL [Concomitant]
     Indication: HYPERTENSION
     Dosage: 25 MG, DAILY
     Route: 048
     Dates: start: 20090101
  6. EXJADE [Suspect]
     Indication: SERUM FERRITIN INCREASED
     Dosage: 1250 MG, QD
     Route: 048
     Dates: start: 20110721, end: 20110826
  7. PRILOSEC [Concomitant]
     Indication: DYSPEPSIA
     Dosage: 20 MG, DAILY
     Route: 048
     Dates: start: 20090101
  8. HYDROXYUREA [Concomitant]
     Indication: ACUTE MYELOID LEUKAEMIA
     Dosage: 500 MG, BID
     Dates: start: 20110826

REACTIONS (16)
  - DIARRHOEA [None]
  - INFLUENZA LIKE ILLNESS [None]
  - BLAST CELLS PRESENT [None]
  - DYSPNOEA [None]
  - BLAST CRISIS IN MYELOGENOUS LEUKAEMIA [None]
  - VISION BLURRED [None]
  - CHEST PAIN [None]
  - WHITE BLOOD CELL COUNT INCREASED [None]
  - PAROSMIA [None]
  - ASTHENIA [None]
  - RASH [None]
  - BACK PAIN [None]
  - NAUSEA [None]
  - ACUTE MYELOID LEUKAEMIA [None]
  - VOMITING [None]
  - DIZZINESS [None]
